FAERS Safety Report 6190549-6 (Version None)
Quarter: 2009Q2

REPORT INFORMATION
  Report Type: 
  Country: None (occurrence: None)
  Receive Date: 20090514
  Receipt Date: 20090506
  Transmission Date: 20091009
  Serious: Yes (Hospitalization)
  Sender: FDA-Public Use
  Company Number: FR-PFIZER INC-2009208428

PATIENT
  Age: 82 Year

DRUGS (1)
  1. SOLU-MEDROL [Suspect]
     Indication: PREMEDICATION
     Dosage: 60 MG, 1X/DAY
     Route: 042
     Dates: start: 20090401, end: 20090401

REACTIONS (3)
  - CHILLS [None]
  - HYPERTHERMIA [None]
  - MALAISE [None]
